FAERS Safety Report 6646135-4 (Version None)
Quarter: 2010Q1

REPORT INFORMATION
  Report Type: 
  Country: None (occurrence: None)
  Receive Date: 20100323
  Receipt Date: 20100315
  Transmission Date: 20100710
  Serious: Yes (Hospitalization, Other)
  Sender: FDA-Public Use
  Company Number: US-TEVA-228268USA

PATIENT
  Age: 70 Year
  Sex: Male

DRUGS (8)
  1. ETHAMBUTOL HYDROCHLORIDE TABLET 400MG [Suspect]
  2. ISONIAZID [Suspect]
  3. PREDNISONE [Suspect]
  4. AZATHIOPRINE [Suspect]
  5. INFLIXIMAB [Suspect]
  6. RIFAMPICIN [Suspect]
  7. PYRAZINAMIDE [Suspect]
  8. PYRIDOXINE [Suspect]
     Dosage: 50MG/DAY

REACTIONS (2)
  - IMMUNE RECONSTITUTION SYNDROME [None]
  - PERITONEAL TUBERCULOSIS [None]
